FAERS Safety Report 14704887 (Version 1)
Quarter: 2018Q2

REPORT INFORMATION
  Report Type: Report from Study
  Country: US (occurrence: US)
  Receive Date: 20180402
  Receipt Date: 20180402
  Transmission Date: 20180711
  Serious: Yes (Hospitalization, Other)
  Sender: FDA-Public Use
  Company Number: US-ASTELLAS-2018US009443

PATIENT
  Age: 53 Year
  Sex: Male

DRUGS (1)
  1. ISAVUCONAZOLE [Suspect]
     Active Substance: ISAVUCONAZOLE
     Indication: LUNG TRANSPLANT
     Dosage: 372 MG (186MG 2 CAPSULES), ONCE DAILY
     Route: 048

REACTIONS (3)
  - Respiratory failure [Unknown]
  - Off label use [Unknown]
  - Lung infection [Unknown]

NARRATIVE: CASE EVENT DATE: 20180315
